FAERS Safety Report 20377385 (Version 1)
Quarter: 2022Q1

REPORT INFORMATION
  Report Type: Spontaneous
  Country: IT (occurrence: IT)
  Receive Date: 20220126
  Receipt Date: 20220126
  Transmission Date: 20220423
  Serious: Yes (Hospitalization)
  Sender: FDA-Public Use
  Company Number: IT-ABBVIE-22K-083-4247914-00

PATIENT
  Age: 86 Year
  Sex: Male

DRUGS (4)
  1. VALPROATE SODIUM [Suspect]
     Active Substance: VALPROATE SODIUM
     Indication: Medication error
     Route: 048
     Dates: start: 20181216, end: 20181216
  2. QUETIAPINE FUMARATE [Suspect]
     Active Substance: QUETIAPINE FUMARATE
     Indication: Medication error
     Route: 048
     Dates: start: 20181216, end: 20181216
  3. VERAPAMIL HYDROCHLORIDE [Suspect]
     Active Substance: VERAPAMIL HYDROCHLORIDE
     Indication: Medication error
     Route: 048
     Dates: start: 20181216, end: 20181216
  4. NALOXONE HYDROCHLORIDE\OXYCODONE HYDROCHLORIDE [Suspect]
     Active Substance: NALOXONE HYDROCHLORIDE\OXYCODONE HYDROCHLORIDE
     Indication: Medication error
     Route: 048
     Dates: start: 20181216, end: 20181216

REACTIONS (2)
  - Sopor [Recovering/Resolving]
  - Wrong patient received product [Unknown]

NARRATIVE: CASE EVENT DATE: 20181216
